FAERS Safety Report 8176486-6 (Version None)
Quarter: 2012Q1

REPORT INFORMATION
  Report Type: 
  Country: None (occurrence: None)
  Receive Date: 20120301
  Receipt Date: 20120224
  Transmission Date: 20120608
  Serious: Yes (Other)
  Sender: FDA-Public Use
  Company Number: FR-PFIZER INC-2012048939

PATIENT
  Age: 59 Year
  Sex: Female

DRUGS (2)
  1. ATROPINE [Concomitant]
     Indication: PROPHYLAXIS
  2. IRINOTECAN HCL [Suspect]
     Indication: COLON CANCER
     Dosage: 300 MG, 1X/DAY
     Route: 042
     Dates: start: 20120102, end: 20120102

REACTIONS (2)
  - MUSCLE CONTRACTURE [None]
  - DYSARTHRIA [None]
